FAERS Safety Report 8163993-5 (Version None)
Quarter: 2012Q1

REPORT INFORMATION
  Report Type: 
  Country: None (occurrence: None)
  Receive Date: 20120224
  Receipt Date: 20120215
  Transmission Date: 20120608
  Serious: Yes (Death)
  Sender: FDA-Public Use
  Company Number: RU-ACTELION PHARMACEUTICALS LTD-A-CH2012-61148

PATIENT
  Age: 2 Year
  Sex: Male

DRUGS (1)
  1. TRACLEER [Suspect]
     Indication: PULMONARY ARTERIAL HYPERTENSION
     Dosage: 31.25 MG, BID
     Route: 048
     Dates: start: 20110601, end: 20120209

REACTIONS (3)
  - HEART DISEASE CONGENITAL [None]
  - UNIVENTRICULAR HEART [None]
  - CONCOMITANT DISEASE AGGRAVATED [None]
